FAERS Safety Report 20691494 (Version 2)
Quarter: 2022Q2

REPORT INFORMATION
  Report Type: Spontaneous
  Country: US (occurrence: US)
  Receive Date: 20220408
  Receipt Date: 20220505
  Transmission Date: 20220720
  Serious: No
  Sender: FDA-Public Use
  Company Number: US-MYLANLABS-2022M1020669

PATIENT
  Sex: Female

DRUGS (1)
  1. BUPRENORPHINE AND NALOXONE SUBLINGUAL FILM [Suspect]
     Active Substance: BUPRENORPHINE HYDROCHLORIDE\NALOXONE HYDROCHLORIDE
     Indication: Haemorrhoids
     Dosage: 4MG/1MG BID
     Route: 061

REACTIONS (2)
  - Off label use [Unknown]
  - Product label issue [Unknown]

NARRATIVE: CASE EVENT DATE: 20220221
